FAERS Safety Report 25273630 (Version 1)
Quarter: 2025Q2

REPORT INFORMATION
  Report Type: Spontaneous
  Country: US (occurrence: None)
  Receive Date: 20250505
  Receipt Date: 20250505
  Transmission Date: 20250716
  Serious: Yes (Death, Hospitalization)
  Sender: FDA-CTU
  Company Number: None

PATIENT
  Age: 62 Year
  Sex: Male

DRUGS (1)
  1. PIRFENIDONE [Suspect]
     Active Substance: PIRFENIDONE
     Indication: Idiopathic pulmonary fibrosis
     Dosage: FREQUENCY : 3 TIMES A DAY;?
     Route: 048
     Dates: start: 20210603, end: 20231129

REACTIONS (6)
  - Acute respiratory failure [None]
  - Pneumonia aspiration [None]
  - Interstitial lung disease [None]
  - Failure to thrive [None]
  - Cachexia [None]
  - Weight decreased [None]

NARRATIVE: CASE EVENT DATE: 20231203
